FAERS Safety Report 20396554 (Version 1)
Quarter: 2022Q1

REPORT INFORMATION
  Report Type: Spontaneous
  Country: IT (occurrence: IT)
  Receive Date: 20220130
  Receipt Date: 20220130
  Transmission Date: 20220424
  Serious: Yes (Other)
  Sender: FDA-Public Use
  Company Number: IT-drreddys-LIT/ITL/22/0146267

PATIENT
  Age: 68 Year
  Sex: Female

DRUGS (19)
  1. FULVESTRANT [Interacting]
     Active Substance: FULVESTRANT
     Indication: Breast cancer
     Dosage: THREE TIMES AS LOADING DOSE, THEN EVERY 4 WEEKS
     Dates: start: 20200514
  2. FULVESTRANT [Interacting]
     Active Substance: FULVESTRANT
     Dosage: THREE TIMES AS LOADING DOSE, THEN EVERY 4 WEEKS
     Dates: end: 20200820
  3. ABEMACICLIB [Interacting]
     Active Substance: ABEMACICLIB
     Indication: Breast cancer
     Dates: start: 20200514
  4. ABEMACICLIB [Interacting]
     Active Substance: ABEMACICLIB
     Dosage: ABEMACICLIB DOSE WAS DECREASED TO 100 MG TWICE DAY
     Dates: end: 20200820
  5. BROCCOLI [Interacting]
     Active Substance: BROCCOLI
     Indication: Product used for unknown indication
  6. GARLIC [Interacting]
     Active Substance: GARLIC
     Indication: Product used for unknown indication
  7. VITAMIN D [Interacting]
     Active Substance: VITAMIN D NOS
     Indication: Product used for unknown indication
     Dosage: HIGH-DOSE
  8. BLACK PEPPER [Interacting]
     Active Substance: BLACK PEPPER
     Indication: Product used for unknown indication
  9. VITAMIN C [Interacting]
     Active Substance: ASCORBIC ACID
     Indication: Product used for unknown indication
  10. ALPHA LIPOIC ACID [Interacting]
     Active Substance: .ALPHA.-LIPOIC ACID
     Indication: Product used for unknown indication
  11. COENZYME Q10 [Interacting]
     Active Substance: DIETARY SUPPLEMENT\UBIDECARENONE
     Indication: Product used for unknown indication
  12. VITAMIN K [Interacting]
     Active Substance: PHYTONADIONE
     Indication: Product used for unknown indication
  13. SELENIUM [Interacting]
     Active Substance: SELENIUM
     Indication: Product used for unknown indication
  14. IODINE [Interacting]
     Active Substance: IODINE
     Indication: Product used for unknown indication
  15. EPIRUBICIN [Suspect]
     Active Substance: EPIRUBICIN
     Indication: Breast cancer
     Dosage: FOR 4 CYCLES
  16. CYCLOPHOSPHAMIDE [Suspect]
     Active Substance: CYCLOPHOSPHAMIDE
     Indication: Breast cancer
     Dosage: FOR 4 CYCLES
  17. PACLITAXEL [Suspect]
     Active Substance: PACLITAXEL
     Indication: Breast cancer
  18. LETROZOLE [Suspect]
     Active Substance: LETROZOLE
     Indication: Breast cancer
     Dosage: ADJUVANT LETROZOLE FOR THREE YEARS
     Dates: end: 20200514
  19. CURCUMIN [Interacting]
     Active Substance: CURCUMIN
     Indication: Product used for unknown indication

REACTIONS (4)
  - Drug ineffective [Unknown]
  - Nephropathy toxic [Unknown]
  - Drug interaction [Unknown]
  - Diarrhoea [Recovering/Resolving]
